FAERS Safety Report 14347389 (Version 1)
Quarter: 2018Q1

REPORT INFORMATION
  Report Type: Spontaneous
  Country: US (occurrence: US)
  Receive Date: 20180102
  Receipt Date: 20180102
  Transmission Date: 20180509
  Serious: Yes (Other)
  Sender: FDA-Public Use
  Company Number: None

PATIENT

DRUGS (2)
  1. EFFIENT [Suspect]
     Active Substance: PRASUGREL HYDROCHLORIDE
     Indication: PRODUCT USED FOR UNKNOWN INDICATION
     Route: 048
  2. EFFERDENT (DEVICE) [Suspect]
     Active Substance: DEVICE
     Route: 004

REACTIONS (3)
  - Transcription medication error [None]
  - Intercepted drug dispensing error [None]
  - Drug dispensing error [None]

NARRATIVE: CASE EVENT DATE: 20171231
